FAERS Safety Report 7824583-4 (Version None)
Quarter: 2011Q4

REPORT INFORMATION
  Report Type: 
  Country: None (occurrence: None)
  Receive Date: 20111019
  Receipt Date: 20111005
  Transmission Date: 20120403
  Serious: Yes (Other)
  Sender: FDA-Public Use
  Company Number: US-ELI_LILLY_AND_COMPANY-US201109000219

PATIENT
  Sex: Female

DRUGS (12)
  1. IBUPROFEN [Concomitant]
  2. MULTI-VITAMIN [Concomitant]
  3. FORTEO [Suspect]
     Indication: OSTEOPOROSIS
     Dosage: UNK, UNKNOWN
     Route: 065
     Dates: start: 20100101
  4. LISINOPRIL [Concomitant]
  5. OMEPRAZOLE [Concomitant]
  6. TRIAMCINOLONE [Concomitant]
  7. VITAMIN B-12 [Concomitant]
  8. MECLOFENAMATE SODIUM [Concomitant]
  9. IRON [Concomitant]
  10. FORTEO [Suspect]
     Dosage: 20 UG, QD
     Route: 065
  11. LEVOTHYROXINE SODIUM [Concomitant]
  12. GABAPENTIN [Concomitant]

REACTIONS (4)
  - VISUAL ACUITY REDUCED [None]
  - DEHYDRATION [None]
  - SQUAMOUS CELL CARCINOMA [None]
  - NEPHROLITHIASIS [None]
